FAERS Safety Report 12394557 (Version 2)
Quarter: 2016Q2

REPORT INFORMATION
  Report Type: Spontaneous
  Country: IT (occurrence: IT)
  Receive Date: 20160523
  Receipt Date: 20160603
  Transmission Date: 20160815
  Serious: Yes (Other)
  Sender: FDA-Public Use
  Company Number: PHHY2016IT066650

PATIENT
  Age: 58 Year
  Sex: Female

DRUGS (2)
  1. LAPATINIB [Suspect]
     Active Substance: LAPATINIB
     Indication: BREAST CANCER STAGE III
     Dosage: 1250 MG, QD
     Route: 048
     Dates: start: 20160308, end: 20160319
  2. CAPECITABINE MEDAC [Suspect]
     Active Substance: CAPECITABINE
     Indication: BREAST CANCER STAGE III
     Dosage: 3000 MG, QD
     Route: 048
     Dates: start: 20160308, end: 20160319

REACTIONS (2)
  - Neutropenia [Recovered/Resolved]
  - Mucosal inflammation [Recovered/Resolved]

NARRATIVE: CASE EVENT DATE: 20160321
